FAERS Safety Report 8066567-X (Version None)
Quarter: 2012Q1

REPORT INFORMATION
  Report Type: 
  Country: None (occurrence: None)
  Receive Date: 20120124
  Receipt Date: 20120118
  Transmission Date: 20120608
  Serious: Yes (Other)
  Sender: FDA-Public Use
  Company Number: PHHY2011NL113741

PATIENT
  Sex: Male

DRUGS (2)
  1. ZOMETA [Suspect]
     Indication: PROSTATE CANCER METASTATIC
     Dosage: 4 MG PER 5 ML ONCE PER 42 DAYS
     Dates: start: 20111003
  2. ZOMETA [Suspect]
     Dosage: 4 MG PER 5 ML ONCE PER 42 DAYS
     Dates: start: 20111114

REACTIONS (1)
  - TERMINAL STATE [None]
